FAERS Safety Report 5324223-2 (Version None)
Quarter: 2007Q2

REPORT INFORMATION
  Report Type: 
  Country: None (occurrence: None)
  Receive Date: 20070507
  Receipt Date: 20070423
  Transmission Date: 20071010
  Serious: Yes (Other)
  Sender: FDA-Public Use
  Company Number: 07052099

PATIENT
  Age: 38 Year
  Sex: Female

DRUGS (1)
  1. LORATADINE [Suspect]
     Dosage: 10MG, QD, ORAL
     Route: 048
     Dates: start: 20070208

REACTIONS (6)
  - NAUSEA [None]
  - PHARYNGEAL INFLAMMATION [None]
  - PHARYNGEAL OEDEMA [None]
  - PRURITUS [None]
  - RASH [None]
  - RASH GENERALISED [None]
